FAERS Safety Report 10873591 (Version 2)
Quarter: 2015Q1

REPORT INFORMATION
  Report Type: Spontaneous
  Country: CH (occurrence: None)
  Receive Date: 20150224
  Receipt Date: 20150306
  Transmission Date: 20150721
  Serious: Yes (Death, Hospitalization)
  Sender: FDA-Public Use
  Company Number: FK201500838

PATIENT
  Age: 2 Year
  Sex: Male

DRUGS (3)
  1. ETOPOSIDE (MANUFACTURER UNKNOWN) (ETOPOSIDE) (ETOPOSIDE) [Suspect]
     Active Substance: ETOPOSIDE
     Indication: NEUROBLASTOMA
  2. MELPHALAN (MELPHALAN) (MELPHALAN) [Suspect]
     Active Substance: MELPHALAN
     Indication: NEUROBLASTOMA
  3. CARBOPLATIN (MANUFACTURER UNKNOWN) (CARBOPLATIN) (CARBOPLATIN) [Suspect]
     Active Substance: CARBOPLATIN
     Indication: NEUROBLASTOMA

REACTIONS (18)
  - Hyperammonaemia [None]
  - Brain oedema [None]
  - Pyrexia [None]
  - Stem cell transplant [None]
  - Renal failure [None]
  - Hyperammonaemic encephalopathy [None]
  - Carbamoyl phosphate synthetase deficiency [None]
  - General physical health deterioration [None]
  - Nephropathy toxic [None]
  - Haemodialysis [None]
  - Gastrointestinal haemorrhage [None]
  - Tubulointerstitial nephritis [None]
  - Hyperlactacidaemia [None]
  - Seizure [None]
  - Pancytopenia [None]
  - Coma [None]
  - Stomatitis [None]
  - Aplasia [None]
